FAERS Safety Report 9100484 (Version 1)
Quarter: 2013Q1

REPORT INFORMATION
  Report Type: Spontaneous
  Country: FR (occurrence: FR)
  Receive Date: 20130215
  Receipt Date: 20130215
  Transmission Date: 20140127
  Serious: Yes (Hospitalization)
  Sender: FDA-Public Use
  Company Number: FR-PFIZER INC-2013057276

PATIENT
  Age: 61 Year
  Sex: Female

DRUGS (6)
  1. VFEND [Suspect]
     Indication: ASPERGILLUS INFECTION
     Dosage: 6 MG/KG, 2X/DAY
     Route: 042
     Dates: start: 20121217, end: 20121217
  2. VFEND [Suspect]
     Dosage: 4 MG/KG, 2X/DAY
     Route: 042
     Dates: start: 20121218, end: 20121222
  3. CYTARABINE [Concomitant]
     Indication: ACUTE MYELOID LEUKAEMIA
  4. CERUBIDIN [Concomitant]
     Indication: ACUTE MYELOID LEUKAEMIA
  5. EMEND [Concomitant]
     Indication: ACUTE MYELOID LEUKAEMIA
  6. ZOPHREN [Concomitant]
     Indication: ACUTE MYELOID LEUKAEMIA

REACTIONS (2)
  - Renal tubular disorder [Recovered/Resolved]
  - Renal failure acute [Recovered/Resolved]
